FAERS Safety Report 10511648 (Version 2)
Quarter: 2015Q1

REPORT INFORMATION
  Report Type: Report from Study
  Country: US (occurrence: US)
  Receive Date: 20141010
  Receipt Date: 20150121
  Transmission Date: 20150720
  Serious: Yes (Hospitalization, Other)
  Sender: FDA-Public Use
  Company Number: US-BRISTOL-MYERS SQUIBB COMPANY-21481387

PATIENT
  Age: 52 Year
  Sex: Male
  Weight: 69.9 kg

DRUGS (20)
  1. RITONAVIR. [Suspect]
     Active Substance: RITONAVIR
     Indication: HIV INFECTION
     Dosage: 100 MG, QD
     Route: 048
     Dates: start: 20130918
  2. SUBOXONE [Concomitant]
     Active Substance: BUPRENORPHINE HYDROCHLORIDE\NALOXONE HYDROCHLORIDE
  3. FLOMAX [Concomitant]
     Active Substance: TAMSULOSIN HYDROCHLORIDE
  4. CREON [Concomitant]
     Active Substance: PANCRELIPASE AMYLASE\PANCRELIPASE LIPASE\PANCRELIPASE PROTEASE
  5. LOTRIMIN [Concomitant]
     Active Substance: CLOTRIMAZOLE
  6. GLUCOPHAGE [Concomitant]
     Active Substance: METFORMIN HYDROCHLORIDE
  7. ATAZANAVIR SULFATE [Suspect]
     Active Substance: ATAZANAVIR SULFATE
     Indication: HIV INFECTION
     Dosage: 300 MG, QD
     Route: 048
     Dates: start: 20130918
  8. NEURONTIN [Concomitant]
     Active Substance: GABAPENTIN
  9. LISINOPRIL. [Concomitant]
     Active Substance: LISINOPRIL
  10. CELEXA [Concomitant]
     Active Substance: CITALOPRAM HYDROBROMIDE
  11. METOPROLOL [Concomitant]
     Active Substance: METOPROLOL
  12. HUMULIN R [Concomitant]
     Active Substance: INSULIN HUMAN
  13. PANCRELIPASE. [Concomitant]
     Active Substance: PANCRELIPASE
  14. SYSTANE (HYPROMELLOSE 2910 (4000 MPA.S)) [Concomitant]
     Active Substance: HYPROMELLOSE 2910 (4000 MPA.S)
  15. TRUVADA [Suspect]
     Active Substance: EMTRICITABINE\TENOFOVIR DISOPROXIL FUMARATE
     Indication: HIV INFECTION
     Dosage: UNK UNK, QD
     Route: 048
     Dates: start: 20130918
  16. NOVOLIN 70/30 [Concomitant]
     Active Substance: INSULIN HUMAN
  17. NORVASC [Concomitant]
     Active Substance: AMLODIPINE BESYLATE
  18. PROSCAR [Concomitant]
     Active Substance: FINASTERIDE
  19. TOPROL XL [Concomitant]
     Active Substance: METOPROLOL SUCCINATE
  20. HUMULIN N [Concomitant]
     Active Substance: INSULIN HUMAN

REACTIONS (5)
  - Abdominal pain [Unknown]
  - Anaemia [None]
  - Syncope [Unknown]
  - Hyperglycaemia [None]
  - Dizziness [Recovered/Resolved]

NARRATIVE: CASE EVENT DATE: 2014
